FAERS Safety Report 10576454 (Version 1)
Quarter: 2014Q4

REPORT INFORMATION
  Report Type: Spontaneous
  Country: None (occurrence: None)
  Receive Date: 20141110
  Receipt Date: 20141110
  Transmission Date: 20150529
  Serious: Yes (Life-Threatening, Hospitalization, Disabling)
  Sender: FDA-Public Use
  Company Number: None

PATIENT
  Age: 28 Year
  Sex: Male
  Weight: 74.84 kg

DRUGS (1)
  1. CHANTIX [Suspect]
     Active Substance: VARENICLINE TARTRATE
     Indication: SMOKING CESSATION THERAPY
     Dates: start: 20140701, end: 20140724

REACTIONS (6)
  - Psychotic disorder [None]
  - Panic attack [None]
  - Anhedonia [None]
  - Anxiety [None]
  - Fear [None]
  - Unevaluable event [None]

NARRATIVE: CASE EVENT DATE: 20140727
